FAERS Safety Report 24413008 (Version 1)
Quarter: 2024Q4

REPORT INFORMATION
  Report Type: Spontaneous
  Country: CA (occurrence: CA)
  Receive Date: 20241008
  Receipt Date: 20241008
  Transmission Date: 20250115
  Serious: Yes (Other)
  Sender: MYLAN
  Company Number: CA-MYLANLABS-2024M1090953

PATIENT
  Age: 52 Year
  Sex: Female
  Weight: 70 kg

DRUGS (6)
  1. CELEBREX [Suspect]
     Active Substance: CELECOXIB
     Indication: Ankylosing spondylitis
     Dosage: 200 MILLIGRAM, BID (2 EVERY 1 DAYS))
     Route: 065
  2. CELEBREX [Suspect]
     Active Substance: CELECOXIB
     Dosage: 400 MILLIGRAM, QD (1 EVERY 1 DAYS)
     Route: 065
  3. ENBREL [Suspect]
     Active Substance: ETANERCEPT
     Indication: Ankylosing spondylitis
     Dosage: 50 MILLIGRAM, QW (1 EVERY 1 WEEKS)
     Route: 065
  4. ENBREL [Suspect]
     Active Substance: ETANERCEPT
     Indication: Ankylosing spondylitis
     Dosage: 50 MILLIGRAM, QW (1 EVERY 1 WEEKS)
     Route: 065
  5. HUMIRA [Concomitant]
     Active Substance: ADALIMUMAB
     Indication: Ankylosing spondylitis
     Dosage: UNK
     Route: 058
  6. SALICYLIC ACID\TRIAMCINOLONE ACETONIDE [Concomitant]
     Active Substance: SALICYLIC ACID\TRIAMCINOLONE ACETONIDE
     Dosage: 10 MILLIGRAM
     Route: 065

REACTIONS (16)
  - Ankylosing spondylitis [Unknown]
  - Arthralgia [Unknown]
  - Back pain [Unknown]
  - Constipation [Unknown]
  - Headache [Unknown]
  - Iritis [Unknown]
  - Joint range of motion decreased [Unknown]
  - Memory impairment [Unknown]
  - Neck pain [Unknown]
  - Plantar fasciitis [Unknown]
  - Sacroiliac joint dysfunction [Unknown]
  - Diarrhoea [Unknown]
  - Dyspepsia [Unknown]
  - Insomnia [Unknown]
  - Rash [Unknown]
  - Drug ineffective [Unknown]
